FAERS Safety Report 15318832 (Version 1)
Quarter: 2018Q3

REPORT INFORMATION
  Report Type: Spontaneous
  Country: US (occurrence: US)
  Receive Date: 20180819
  Receipt Date: 20180819
  Transmission Date: 20181010
  Serious: Yes (Death, Hospitalization)
  Sender: FDA-Public Use
  Company Number: None

PATIENT
  Age: 66 Year
  Sex: Female
  Weight: 81.9 kg

DRUGS (1)
  1. AVASTIN [Suspect]
     Active Substance: BEVACIZUMAB
     Indication: OVARIAN CANCER
     Dates: start: 20180618, end: 20180618

REACTIONS (4)
  - Myocarditis [None]
  - Cardiac failure congestive [None]
  - Haemorrhage coronary artery [None]
  - Intracardiac thrombus [None]

NARRATIVE: CASE EVENT DATE: 20180619
